FAERS Safety Report 17515808 (Version 2)
Quarter: 2020Q1

REPORT INFORMATION
  Report Type: Spontaneous
  Country: US (occurrence: US)
  Receive Date: 20200309
  Receipt Date: 20200319
  Transmission Date: 20200409
  Serious: Yes (Hospitalization, Other)
  Sender: FDA-Public Use
  Company Number: US-ACCORD-174964

PATIENT
  Age: 38 Year
  Sex: Male

DRUGS (12)
  1. PANTOPRAZOLE [Concomitant]
     Active Substance: PANTOPRAZOLE
  2. CLOZAPINE. [Suspect]
     Active Substance: CLOZAPINE
     Indication: PSYCHOTIC DISORDER
     Dosage: 50 MG (34 MONTHS) ORALLY IN THE MORNING AND 500 MG ORALLY (34 MONTHS) AT BEDTIME
     Route: 048
  3. BENZATROPINE [Concomitant]
     Active Substance: BENZTROPINE
     Indication: DROOLING
     Dosage: AT BEDTIME
     Route: 048
  4. PAROXETINE. [Concomitant]
     Active Substance: PAROXETINE
     Indication: SCHIZOAFFECTIVE DISORDER BIPOLAR TYPE
     Dosage: 20 MG ORALLY DAILY FOR MOOD
     Route: 048
  5. FISH OIL [Concomitant]
     Active Substance: FISH OIL
  6. BUPROPION/BUPROPION HYDROCHLORIDE [Interacting]
     Active Substance: BUPROPION HYDROCHLORIDE
     Indication: SMOKING CESSATION THERAPY
     Dosage: IN THE MORNING, BUPROPION SR?REDUCED TO BUPROPION SR 150 MG ORALLY ONCE DAILY FROM TWICE DAILY
     Route: 048
  7. PRAZOSIN. [Concomitant]
     Active Substance: PRAZOSIN
     Indication: NIGHTMARE
     Dosage: 12 MG ORALLY AT BEDTIME
     Route: 048
  8. PROPRANOLOL [Concomitant]
     Active Substance: PROPRANOLOL HYDROCHLORIDE
     Indication: AKATHISIA
     Dosage: 20 MG ORALLY TWICE DAILY
     Route: 048
  9. METHOCARBAMOL. [Concomitant]
     Active Substance: METHOCARBAMOL
  10. GABAPENTIN. [Concomitant]
     Active Substance: GABAPENTIN
     Dosage: 600 MG ORALLY TWICE DAILY AND 1200?MG ORALLY AT BEDTIME
     Route: 048
  11. BACLOFEN. [Concomitant]
     Active Substance: BACLOFEN
  12. VITAMINS NOS [Concomitant]
     Active Substance: VITAMINS

REACTIONS (3)
  - Epilepsy [Recovered/Resolved]
  - Drug interaction [Unknown]
  - Off label use [Unknown]
